FAERS Safety Report 4311041-7 (Version None)
Quarter: 2004Q1

REPORT INFORMATION
  Report Type: 
  Country: None (occurrence: None)
  Receive Date: 20040303
  Receipt Date: 20040303
  Transmission Date: 20041129
  Serious: Yes (Life-Threatening)
  Sender: FDA-Public Use
  Company Number: None

PATIENT
  Age: 50 Year
  Sex: Male

DRUGS (1)
  1. IOHEXOL [Suspect]
     Indication: CARDIAC DISORDER
     Dosage: 350 MG ONCE
     Dates: start: 20031114, end: 20031114

REACTIONS (4)
  - ANAPHYLACTIC REACTION [None]
  - CARDIOVASCULAR DISORDER [None]
  - CONTRAST MEDIA REACTION [None]
  - RESPIRATORY DISORDER [None]
